FAERS Safety Report 4310658-3 (Version None)
Quarter: 2004Q1

REPORT INFORMATION
  Report Type: 
  Country: None (occurrence: None)
  Receive Date: 20040301
  Receipt Date: 20031030
  Transmission Date: 20041129
  Serious: No
  Sender: FDA-Public Use
  Company Number: WAES 0310USA03310

PATIENT
  Age: 74 Year
  Sex: Female
  Weight: 82.5547 kg

DRUGS (9)
  1. ZETIA [Suspect]
     Indication: BLOOD CHOLESTEROL INCREASED
     Dosage: 10MG/DAILY/PO
     Route: 048
     Dates: start: 20031012
  2. AVAPRO [Concomitant]
  3. PRAVACHOL [Concomitant]
  4. ASPIRIN [Concomitant]
  5. DILTIAZEM HYDROCHLORIDE [Concomitant]
  6. HEPATITIS B VIRUS VACCINE [Concomitant]
  7. HYDROCHLOROTHIAZIDE [Concomitant]
  8. INFLUENZA VIRUS VACCINE [Concomitant]
  9. TYPHOID VACCINE [Concomitant]

REACTIONS (7)
  - ASTHENIA [None]
  - BACK PAIN [None]
  - DIZZINESS [None]
  - HEADACHE [None]
  - NAUSEA [None]
  - PYREXIA [None]
  - RHINORRHOEA [None]
